FAERS Safety Report 9513005 (Version 1)
Quarter: 2013Q3

REPORT INFORMATION
  Report Type: Spontaneous
  Country: US (occurrence: US)
  Receive Date: 20130910
  Receipt Date: 20130910
  Transmission Date: 20140515
  Serious: No
  Sender: FDA-Public Use
  Company Number: US-PFIZER INC-2013258578

PATIENT
  Age: 57 Year
  Sex: Female
  Weight: 56.24 kg

DRUGS (7)
  1. GABAPENTIN [Suspect]
     Indication: HYPOAESTHESIA
     Dosage: UNK
     Dates: start: 2006, end: 2006
  2. GABAPENTIN [Suspect]
     Indication: PARAESTHESIA
  3. HYDROCODONE [Concomitant]
     Dosage: UNK
  4. ALPRAZOLAM [Concomitant]
     Dosage: 1 MG, UNK
  5. CYMBALTA [Concomitant]
     Dosage: UNK
  6. SERTRALINE [Concomitant]
     Dosage: UNK
  7. XARELTO [Concomitant]
     Dosage: UNK

REACTIONS (2)
  - Off label use [Recovered/Resolved]
  - Drug ineffective for unapproved indication [Recovered/Resolved]
